FAERS Safety Report 7517934-1 (Version None)
Quarter: 2011Q2

REPORT INFORMATION
  Report Type: 
  Country: None (occurrence: None)
  Receive Date: 20110602
  Receipt Date: 20110519
  Transmission Date: 20111010
  Serious: Yes (Hospitalization, Other)
  Sender: FDA-Public Use
  Company Number: DE-RANBAXY-2008RR-19841

PATIENT
  Age: 37 Year
  Sex: Female
  Weight: 45 kg

DRUGS (9)
  1. LORMETAZEPAM [Concomitant]
     Dosage: 1 MG, QD
     Route: 048
     Dates: start: 20080326, end: 20080407
  2. NOVALGIN [Concomitant]
     Dosage: 750 MG, QD
     Route: 048
     Dates: start: 20080326, end: 20080409
  3. PANTOPRAZOLE [Concomitant]
     Dosage: 40 MG, QD
     Route: 048
     Dates: start: 20080326, end: 20080413
  4. IBUPROFEN [Suspect]
     Dosage: UNK
     Dates: start: 20070622, end: 20080229
  5. BUPIVACAINE HCL [Suspect]
     Dosage: 50 MG, UNK
     Route: 053
     Dates: start: 20080401, end: 20080409
  6. TRAMADOL HYDROCHLORIDE [Concomitant]
     Dosage: 75 MG, QD
     Route: 048
     Dates: start: 20080409, end: 20080409
  7. IBUPROFEN [Suspect]
     Indication: PAIN
     Dosage: 400 MG, TID
     Route: 048
     Dates: start: 20080326, end: 20080413
  8. BUPIVACAINE HCL [Suspect]
     Dosage: 50 MG, SINGLE
  9. EMBOLEX [Concomitant]
     Indication: THROMBOSIS PROPHYLAXIS
     Dosage: 3000 IU, QD
     Route: 058
     Dates: start: 20080326, end: 20080410

REACTIONS (1)
  - HEPATITIS ACUTE [None]
